FAERS Safety Report 26166504 (Version 1)
Quarter: 2025Q4

REPORT INFORMATION
  Report Type: Spontaneous
  Country: BD (occurrence: BD)
  Receive Date: 20251217
  Receipt Date: 20251217
  Transmission Date: 20260117
  Serious: Yes (Other)
  Sender: ACCORD
  Company Number: BD-MLMSERVICE-20251202-PI729002-00043-2

PATIENT
  Age: 70 Year
  Sex: Female

DRUGS (6)
  1. ALLOPURINOL [Suspect]
     Active Substance: ALLOPURINOL
     Indication: Gout
  2. ASPIRIN [Concomitant]
     Active Substance: ASPIRIN
  3. CARVEDILOL [Concomitant]
     Active Substance: CARVEDILOL
  4. AMLODIPINE [Concomitant]
     Active Substance: AMLODIPINE BESYLATE
  5. MINOXIDIL [Concomitant]
     Active Substance: MINOXIDIL
  6. ESOMEPRAZOLE [Concomitant]
     Active Substance: ESOMEPRAZOLE

REACTIONS (1)
  - Angioedema [Recovered/Resolved]
